FAERS Safety Report 11090130 (Version 1)
Quarter: 2015Q2

REPORT INFORMATION
  Report Type: Spontaneous
  Country: TR (occurrence: None)
  Receive Date: 20150501
  Receipt Date: 20150501
  Transmission Date: 20150821
  Serious: Yes (Other)
  Sender: FDA-Public Use
  Company Number: 2015JUB00111

PATIENT
  Age: 83 Year
  Sex: Female

DRUGS (1)
  1. METHYLPREDNISOLONE (METHYLPREDNISOLONE) UNKNOWN [Suspect]
     Active Substance: METHYLPREDNISOLONE
     Indication: POLYMYALGIA RHEUMATICA
     Dosage: 20 MG, 1X/DAY

REACTIONS (2)
  - Human herpes virus 8 test positive [None]
  - Kaposi^s sarcoma [None]
